FAERS Safety Report 7532959-8 (Version None)
Quarter: 2011Q2

REPORT INFORMATION
  Report Type: 
  Country: None (occurrence: None)
  Receive Date: 20110608
  Receipt Date: 20110601
  Transmission Date: 20111010
  Serious: No
  Sender: FDA-Public Use
  Company Number: US-PFIZER INC-2011119722

PATIENT

DRUGS (1)
  1. DETROL LA [Suspect]

REACTIONS (1)
  - DYSPHAGIA [None]
